FAERS Safety Report 11810241 (Version 1)
Quarter: 2015Q4

REPORT INFORMATION
  Report Type: Spontaneous
  Country: US (occurrence: None)
  Receive Date: 20151207
  Receipt Date: 20151207
  Transmission Date: 20160305
  Serious: No
  Sender: FDA-Public Use
  Company Number: None

PATIENT
  Age: 25 Year
  Sex: Male

DRUGS (1)
  1. HUMIRA [Suspect]
     Active Substance: ADALIMUMAB
     Indication: CROHN^S DISEASE
     Dosage: Q14D
     Route: 058
     Dates: start: 20150626

REACTIONS (5)
  - Dry skin [None]
  - Erythema [None]
  - Hypersensitivity [None]
  - Skin warm [None]
  - Contusion [None]

NARRATIVE: CASE EVENT DATE: 20151204
